FAERS Safety Report 7293427-4 (Version None)
Quarter: 2011Q1

REPORT INFORMATION
  Report Type: 
  Country: None (occurrence: None)
  Receive Date: 20110215
  Receipt Date: 20110207
  Transmission Date: 20110831
  Serious: Yes (Disabling)
  Sender: FDA-Public Use
  Company Number: US-ELI_LILLY_AND_COMPANY-US201101003612

PATIENT
  Age: 64 Year
  Sex: Female
  Weight: 90.703 kg

DRUGS (6)
  1. HUMALOG MIX 75/25 [Suspect]
     Dosage: 60 U, EACH MORNING
     Dates: start: 20101001
  2. HUMALOG MIX 75/25 [Suspect]
     Indication: DIABETES MELLITUS
     Dosage: 60 U, EACH MORNING
     Dates: start: 20101001
  3. HUMALOG MIX 75/25 [Suspect]
     Dosage: 60 U, EACH MORNING
     Dates: start: 20101001
  4. HUMALOG MIX 75/25 [Suspect]
     Dosage: 55 U, EACH EVENING
     Dates: start: 20101001
  5. HUMALOG MIX 75/25 [Suspect]
     Dosage: 55 U, EACH EVENING
     Dates: start: 20101001
  6. HUMALOG MIX 75/25 [Suspect]
     Dosage: 55 U, EACH EVENING
     Dates: start: 20101001

REACTIONS (5)
  - DRUG DOSE OMISSION [None]
  - MOBILITY DECREASED [None]
  - VISUAL ACUITY REDUCED [None]
  - BLOOD GLUCOSE INCREASED [None]
  - FALL [None]
